FAERS Safety Report 11487814 (Version 1)
Quarter: 2015Q3

REPORT INFORMATION
  Report Type: Report from Study
  Country: CZ (occurrence: CZ)
  Receive Date: 20150909
  Receipt Date: 20150909
  Transmission Date: 20151125
  Serious: No
  Sender: FDA-Public Use
  Company Number: CZ-UCBSA-2015028479

PATIENT
  Age: 23 Year
  Sex: Male
  Weight: 70 kg

DRUGS (1)
  1. *CARBAMAZEPINE [Suspect]
     Active Substance: CARBAMAZEPINE
     Indication: EPILEPSY
     Dosage: 4 DF, 2X/DAY (BID)
     Route: 048
     Dates: start: 20121018, end: 20121030

REACTIONS (1)
  - Hypersensitivity [Recovered/Resolved]

NARRATIVE: CASE EVENT DATE: 20121031
